FAERS Safety Report 5243427-0 (Version None)
Quarter: 2007Q1

REPORT INFORMATION
  Report Type: 
  Country: None (occurrence: None)
  Receive Date: 20070215
  Receipt Date: 20070124
  Transmission Date: 20070707
  Serious: Yes (Death)
  Sender: FDA-Public Use
  Company Number: 235826

PATIENT
  Age: 72 Year
  Sex: Male
  Weight: 89.9 kg

DRUGS (10)
  1. AVASTIN [Suspect]
     Indication: COLON CANCER
     Dosage: 500 MG, Q2W, INTRAVENOUS; 675 MG, Q3W, INTRAVENOUS
     Route: 042
     Dates: start: 20060614, end: 20061109
  2. AVASTIN [Suspect]
     Indication: COLON CANCER
     Dosage: 500 MG, Q2W, INTRAVENOUS; 675 MG, Q3W, INTRAVENOUS
     Route: 042
     Dates: start: 20051214
  3. OXALIPLATIN [Suspect]
     Indication: COLON CANCER
     Dosage: 190 MG, Q2W, INTRAVENOUS
     Route: 042
     Dates: start: 20051214
  4. FLUOROURACIL [Suspect]
     Indication: COLON CANCER
     Dosage: 1300 MG, Q2W, INTRAVENOUS; 875 MG, IV BOLUS
     Route: 040
     Dates: start: 20051214
  5. LEUCOVORIN CALCIUM [Suspect]
     Indication: COLON CANCER
     Dosage: 880 MG, Q2W, INTRAVENOUS
     Route: 042
  6. SPIRIVA [Concomitant]
  7. ADVAIR DISKUS 100/50 [Concomitant]
  8. SALBUTAMOL (ALBUTEROL/ALBUTEROL SULFATE) [Concomitant]
  9. VASOTEC [Concomitant]
  10. RANITIDINE [Concomitant]

REACTIONS (3)
  - CARDIAC DISORDER [None]
  - EMBOLISM [None]
  - LOSS OF CONSCIOUSNESS [None]
